FAERS Safety Report 14757329 (Version 7)
Quarter: 2022Q3

REPORT INFORMATION
  Report Type: Spontaneous
  Country: US (occurrence: US)
  Receive Date: 20180413
  Receipt Date: 20220721
  Transmission Date: 20221027
  Serious: Yes (Other)
  Sender: FDA-Public Use
  Company Number: US-PFIZER INC-2018152283

PATIENT
  Sex: Female

DRUGS (14)
  1. PREVACID [Suspect]
     Active Substance: LANSOPRAZOLE
     Dosage: UNK
     Route: 048
     Dates: start: 198909, end: 201712
  2. PROTONIX [Suspect]
     Active Substance: PANTOPRAZOLE SODIUM
     Indication: Gastrooesophageal reflux disease
     Dosage: 20 MILLIGRAM, QD
     Route: 048
     Dates: start: 200002, end: 200003
  3. DEXILANT [Suspect]
     Active Substance: DEXLANSOPRAZOLE
     Indication: Gastrooesophageal reflux disease
     Dosage: 30 MILLIGRAM, QD
     Route: 048
     Dates: start: 200901, end: 200902
  4. NEXIUM [Suspect]
     Active Substance: ESOMEPRAZOLE MAGNESIUM
     Indication: Gastrooesophageal reflux disease
     Dosage: 40 MILLIGRAM, QD
     Route: 048
     Dates: start: 200103, end: 201708
  5. NEXIUM 24HR [Suspect]
     Active Substance: ESOMEPRAZOLE MAGNESIUM
     Dosage: UNK
     Route: 048
     Dates: start: 198909, end: 201712
  6. ESOMEPRAZOLE [Suspect]
     Active Substance: ESOMEPRAZOLE
     Indication: Gastrooesophageal reflux disease
     Dosage: 40 MILLIGRAM, QD
     Route: 048
     Dates: start: 201606, end: 201808
  7. PREVACID 24 HR [Suspect]
     Active Substance: LANSOPRAZOLE
     Dosage: UNK
     Route: 048
     Dates: start: 198909, end: 201712
  8. PRILOSEC [Suspect]
     Active Substance: OMEPRAZOLE MAGNESIUM
     Indication: Gastrooesophageal reflux disease
     Dosage: 40 MILLIGRAM, QD
     Route: 048
     Dates: start: 200001, end: 200002
  9. PRILOSEC OTC [Suspect]
     Active Substance: OMEPRAZOLE MAGNESIUM
     Dosage: UNK
     Dates: start: 198909, end: 201712
  10. OMEPRAZOLE MAGNESIUM [Suspect]
     Active Substance: OMEPRAZOLE MAGNESIUM
     Dosage: UNK
     Route: 048
     Dates: start: 198909, end: 201712
  11. AMITRIPTYLINE [Concomitant]
     Active Substance: AMITRIPTYLINE
     Indication: Depression
     Dosage: UNK
  12. CARVEDILOL [Concomitant]
     Active Substance: CARVEDILOL
     Indication: Hypertension
     Dosage: UNK
  13. GABAPENTIN [Concomitant]
     Active Substance: GABAPENTIN
     Indication: Neuralgia
     Dosage: UNK
  14. FERROUS SULFATE [Concomitant]
     Active Substance: FERROUS SULFATE
     Indication: Iron deficiency
     Dosage: UNK

REACTIONS (1)
  - Chronic kidney disease [Not Recovered/Not Resolved]
